FAERS Safety Report 6615367-3 (Version None)
Quarter: 2010Q1

REPORT INFORMATION
  Report Type: 
  Country: None (occurrence: None)
  Receive Date: 20100305
  Receipt Date: 20090911
  Transmission Date: 20100710
  Serious: No
  Sender: FDA-Public Use
  Company Number: A0806907A

PATIENT
  Sex: Male

DRUGS (5)
  1. ROPINIROLE [Suspect]
     Route: 048
  2. NAMENDA [Concomitant]
  3. ARICEPT [Concomitant]
  4. PROSCAR [Concomitant]
  5. SINEMET [Concomitant]

REACTIONS (1)
  - CONFUSIONAL STATE [None]
